FAERS Safety Report 26201995 (Version 1)
Quarter: 2025Q4

REPORT INFORMATION
  Report Type: Spontaneous
  Country: US (occurrence: US)
  Receive Date: 20251226
  Receipt Date: 20251226
  Transmission Date: 20260118
  Serious: No
  Sender: SANOFI AVENTIS
  Company Number: US-SANOFI-02758045

PATIENT
  Age: 80 Year
  Sex: Female

DRUGS (2)
  1. LANTUS SOLOSTAR [Suspect]
     Active Substance: INSULIN GLARGINE
     Indication: Type 1 diabetes mellitus
     Dosage: 8 UNITS IN AM AND 6 UNITS IN PM BID AND DRUG TREATMENT DURATION:1 DAY FOR 1 PEN; UNKNOWN FOR THE OTH
     Route: 065
  2. HUMALOG [Concomitant]
     Active Substance: INSULIN LISPRO

REACTIONS (3)
  - Blood glucose decreased [Unknown]
  - Off label use [Unknown]
  - Product storage error [Unknown]
